FAERS Safety Report 8885543 (Version 3)
Quarter: 2013Q1

REPORT INFORMATION
  Report Type: Spontaneous
  Country: JP (occurrence: JP)
  Receive Date: 20121102
  Receipt Date: 20130306
  Transmission Date: 20140127
  Serious: Yes (Other)
  Sender: FDA-Public Use
  Company Number: JP-AMGEN-JPNSP2012069198

PATIENT
  Age: 28 Year
  Sex: Male
  Weight: 63 kg

DRUGS (8)
  1. VECTIBIX [Suspect]
     Indication: COLON CANCER
     Dosage: 380 MG, UNK
     Route: 041
     Dates: start: 20120906, end: 20120906
  2. CAMPTO [Concomitant]
     Indication: COLON CANCER
     Dosage: 255 MG, QD
     Route: 041
     Dates: start: 20120906, end: 20120906
  3. WHITE PETROLATUM [Concomitant]
     Indication: PROPHYLAXIS
     Dosage: UNK UNK, QD
     Route: 062
     Dates: start: 20120906
  4. RESTAMIN                           /00000401/ [Concomitant]
     Indication: ALLERGY PROPHYLAXIS
     Dosage: 50 MG, QD
     Route: 048
     Dates: start: 20120906, end: 20120906
  5. ALOXI [Concomitant]
     Indication: PROPHYLAXIS OF NAUSEA AND VOMITING
     Dosage: 0.75 MG, QD
     Route: 041
     Dates: start: 20120906, end: 20120906
  6. DEXART [Concomitant]
     Indication: ALLERGY PROPHYLAXIS
     Dosage: 16.5 MG, QD
     Route: 041
     Dates: start: 20120906, end: 20120906
  7. GASTER [Concomitant]
     Indication: ALLERGY PROPHYLAXIS
     Dosage: 20 MG, QD
     Route: 041
     Dates: start: 20120906, end: 20120906
  8. PROEMEND [Concomitant]
     Indication: PROPHYLAXIS OF NAUSEA AND VOMITING
     Dosage: 150 MG, QD
     Route: 041
     Dates: start: 20120906, end: 20120906

REACTIONS (2)
  - Stevens-Johnson syndrome [Recovered/Resolved]
  - Nausea [Unknown]
